FAERS Safety Report 7860276-5 (Version None)
Quarter: 2011Q4

REPORT INFORMATION
  Report Type: 
  Country: None (occurrence: None)
  Receive Date: 20111027
  Receipt Date: 20111021
  Transmission Date: 20120403
  Serious: Yes (Hospitalization)
  Sender: FDA-Public Use
  Company Number: US-AMGEN-USASP2011042434

PATIENT
  Sex: Male
  Weight: 3.2 kg

DRUGS (12)
  1. IRON [Concomitant]
     Indication: ANAEMIA
     Route: 064
  2. ENBREL [Suspect]
     Dosage: 50 UNK, QWK
     Route: 064
     Dates: start: 20090511, end: 20091229
  3. METFORMIN HCL [Concomitant]
     Route: 064
  4. VITAMINS                           /00067501/ [Concomitant]
     Dosage: UNK UNK, QD
     Route: 064
  5. ZYRTEC [Concomitant]
     Dosage: UNK UNK, PRN
     Route: 064
  6. ENBREL [Suspect]
     Dosage: 50 UNK, QWK
     Route: 064
     Dates: start: 20110619
  7. CALCIUM CARBONATE [Concomitant]
     Dosage: UNK
     Route: 064
  8. ENBREL [Suspect]
     Dosage: 50 MG, QWK
     Route: 064
     Dates: start: 20090501, end: 20100101
  9. ENBREL [Suspect]
     Dosage: 50 MG, QWK
     Dates: start: 20110806
  10. SINGULAIR [Concomitant]
     Indication: ASTHMA
     Dosage: 10 MG, QD
     Route: 064
  11. WELLBUTRIN [Concomitant]
     Dosage: UNK
     Route: 064
  12. PRENEXA [Concomitant]
     Dosage: UNK
     Route: 064

REACTIONS (3)
  - NEONATAL ASPIRATION [None]
  - NEONATAL TACHYPNOEA [None]
  - RESPIRATORY DISTRESS [None]
